FAERS Safety Report 5839066-0 (Version None)
Quarter: 2008Q3

REPORT INFORMATION
  Report Type: 
  Country: None (occurrence: None)
  Receive Date: 20080808
  Receipt Date: 20080801
  Transmission Date: 20090109
  Serious: Yes (Hospitalization)
  Sender: FDA-Public Use
  Company Number: US-ABBOTT-08P-163-0449989-00

PATIENT
  Sex: Female
  Weight: 56.9 kg

DRUGS (4)
  1. RITONAVIR SOFT GELATIN CAPSULES [Suspect]
     Indication: HIV INFECTION
     Route: 048
     Dates: start: 20070502
  2. PREZISTA [Concomitant]
     Indication: HIV INFECTION
     Dates: start: 20070502
  3. TMC125 [Concomitant]
     Indication: HIV INFECTION
     Dates: start: 20070502
  4. TRUVADA [Concomitant]
     Indication: HIV INFECTION

REACTIONS (1)
  - DEPENDENCE [None]
